FAERS Safety Report 6373380-8 (Version None)
Quarter: 2009Q3

REPORT INFORMATION
  Report Type: 
  Country: None (occurrence: None)
  Receive Date: 20090924
  Receipt Date: 20090313
  Transmission Date: 20100115
  Serious: No
  Sender: FDA-Public Use
  Company Number: US-ASTRAZENECA-2009UW06609

PATIENT
  Age: 41 Year
  Sex: Female
  Weight: 50.8 kg

DRUGS (7)
  1. SEROQUEL XR [Suspect]
     Indication: BIPOLAR DISORDER
     Dosage: 25-400 MG
     Route: 048
     Dates: start: 20080901
  2. ZOMIG [Concomitant]
  3. LITHIUM [Concomitant]
  4. CITALOPRAM [Concomitant]
  5. PROPRANOLOL [Concomitant]
  6. VITAMINS [Concomitant]
  7. RITALIN [Concomitant]

REACTIONS (2)
  - FEELING ABNORMAL [None]
  - SOMNOLENCE [None]
